FAERS Safety Report 8180568-2 (Version None)
Quarter: 2012Q1

REPORT INFORMATION
  Report Type: 
  Country: None (occurrence: None)
  Receive Date: 20120302
  Receipt Date: 20120223
  Transmission Date: 20120608
  Serious: Yes (Death)
  Sender: FDA-Public Use
  Company Number: US-PFIZER INC-2011260671

PATIENT
  Age: 22 Year
  Sex: Female
  Weight: 53.5 kg

DRUGS (3)
  1. CITALOPRAM [Suspect]
     Route: 065
  2. MORPHINE SULFATE [Suspect]
     Dosage: UNK
  3. SALICYLATE SODIUM [Suspect]

REACTIONS (2)
  - COMPLETED SUICIDE [None]
  - MULTIPLE DRUG OVERDOSE INTENTIONAL [None]
